FAERS Safety Report 7381459-7 (Version None)
Quarter: 2011Q1

REPORT INFORMATION
  Report Type: 
  Country: None (occurrence: None)
  Receive Date: 20110329
  Receipt Date: 20110323
  Transmission Date: 20110831
  Serious: Yes (Other)
  Sender: FDA-Public Use
  Company Number: CL-PFIZER INC-2011064693

PATIENT
  Sex: Male
  Weight: 29.5 kg

DRUGS (4)
  1. ACICLOVIR [Concomitant]
     Dosage: 400 MG, 3X/DAY
     Dates: start: 20101208
  2. VANCOMYCIN [Concomitant]
     Dosage: 400 MG, 4X/DAY
     Dates: start: 20101126
  3. ANIDULAFUNGIN [Suspect]
     Indication: CANDIDIASIS
     Dosage: 100 MG, 1X/DAY
     Route: 042
     Dates: start: 20101212, end: 20101212
  4. MEROPENEM [Concomitant]
     Dosage: 1.5 G, 3X/DAY
     Dates: start: 20101206

REACTIONS (4)
  - EPISTAXIS [None]
  - RASH [None]
  - ANAPHYLACTIC SHOCK [None]
  - RESPIRATORY DISORDER [None]
